FAERS Safety Report 4398913-2 (Version None)
Quarter: 2004Q2

REPORT INFORMATION
  Report Type: 
  Country: None (occurrence: None)
  Receive Date: 20040621
  Receipt Date: 20031028
  Transmission Date: 20050107
  Serious: Yes (Death, Other)
  Sender: FDA-Public Use
  Company Number: USA-2003-0008652

PATIENT
  Age: 53 Year
  Sex: Female
  Weight: 108.8 kg

DRUGS (5)
  1. OXYCONTIN [Suspect]
     Indication: PAIN
     Dosage: 10 MG, BID, ORAL
     Route: 048
  2. FLEXERIL [Suspect]
  3. ACETAMINOPHEN [Suspect]
  4. ETHANOL (ETHANOL) [Suspect]
  5. DILTIAZEM [Suspect]

REACTIONS (7)
  - ABDOMINAL DISTENSION [None]
  - ABDOMINAL PAIN UPPER [None]
  - ACCIDENTAL OVERDOSE [None]
  - BACK PAIN [None]
  - DRUG ABUSER [None]
  - INCISION SITE COMPLICATION [None]
  - MULTIPLE DRUG OVERDOSE [None]
